FAERS Safety Report 21630098 (Version 1)
Quarter: 2022Q4

REPORT INFORMATION
  Report Type: Other
  Country: US (occurrence: US)
  Receive Date: 20221122
  Receipt Date: 20221122
  Transmission Date: 20230112
  Serious: Yes (Other)
  Sender: FDA-Public Use
  Company Number: US-UROVANT SCIENCES GMBH-202211-URV-001625

PATIENT
  Age: 93 Year
  Sex: Male

DRUGS (2)
  1. GEMTESA [Suspect]
     Active Substance: VIBEGRON
     Indication: Urinary incontinence
     Dosage: 75 MG, QD
     Route: 048
     Dates: start: 20221110
  2. GEMTESA [Suspect]
     Active Substance: VIBEGRON
     Indication: Hypertonic bladder

REACTIONS (4)
  - Suicidal ideation [Not Recovered/Not Resolved]
  - Pollakiuria [Not Recovered/Not Resolved]
  - Nocturia [Not Recovered/Not Resolved]
  - Insomnia [Not Recovered/Not Resolved]

NARRATIVE: CASE EVENT DATE: 20221113
